FAERS Safety Report 13557925 (Version 1)
Quarter: 2017Q2

REPORT INFORMATION
  Report Type: Report from Study
  Country: US (occurrence: US)
  Receive Date: 20170517
  Receipt Date: 20170517
  Transmission Date: 20170830
  Serious: No
  Sender: FDA-Public Use
  Company Number: US-ACADIA PHARMACEUTICALS INC.-ACA-2017-003169

PATIENT
  Age: 73 Year
  Sex: Male
  Weight: 68.27 kg

DRUGS (1)
  1. NUPLAZID [Suspect]
     Active Substance: PIMAVANSERIN TARTRATE
     Indication: PRODUCT USED FOR UNKNOWN INDICATION
     Dosage: 34 MG, QD
     Dates: start: 201704

REACTIONS (2)
  - Chest pain [Recovered/Resolved]
  - Extra dose administered [Unknown]

NARRATIVE: CASE EVENT DATE: 20170419
